FAERS Safety Report 4531103-9 (Version None)
Quarter: 2004Q4

REPORT INFORMATION
  Report Type: 
  Country: None (occurrence: None)
  Receive Date: 20041130
  Receipt Date: 20031021
  Transmission Date: 20050328
  Serious: Yes (Other)
  Sender: FDA-Public Use
  Company Number: WAES 0309USA02452

PATIENT
  Age: 61 Year
  Sex: Female
  Weight: 51.2565 kg

DRUGS (1)
  1. FOSAMAX [Suspect]
     Indication: OSTEOPOROSIS
     Dosage: PO
     Route: 048
     Dates: start: 19980101, end: 20030604

REACTIONS (3)
  - BONE PAIN [None]
  - MYALGIA [None]
  - RASH [None]
